FAERS Safety Report 16693437 (Version 4)
Quarter: 2019Q3

REPORT INFORMATION
  Report Type: Spontaneous
  Country: US (occurrence: US)
  Receive Date: 20190812
  Receipt Date: 20190819
  Transmission Date: 20191004
  Serious: Yes (Other)
  Sender: FDA-Public Use
  Company Number: US-CELGENEUS-USA-20190802239

PATIENT
  Age: 72 Year
  Sex: Female

DRUGS (3)
  1. OTEZLA [Suspect]
     Active Substance: APREMILAST
     Indication: PRODUCT USED FOR UNKNOWN INDICATION
     Route: 048
     Dates: start: 2017, end: 201804
  2. HUMIRA [Suspect]
     Active Substance: ADALIMUMAB
     Indication: PSORIASIS
     Dosage: 40 MILLIGRAM
     Route: 058
     Dates: start: 2004, end: 2017
  3. HUMIRA [Suspect]
     Active Substance: ADALIMUMAB
     Dosage: 40 MILLIGRAM
     Route: 058
     Dates: start: 2018

REACTIONS (10)
  - Psoriasis [Recovered/Resolved]
  - Nerve compression [Recovered/Resolved]
  - Cataract [Unknown]
  - Diarrhoea [Recovered/Resolved]
  - Headache [Unknown]
  - Procedural pain [Recovered/Resolved]
  - Gait disturbance [Recovered/Resolved]
  - Depression [Not Recovered/Not Resolved]
  - Joint dislocation [Recovered/Resolved]
  - Peripheral swelling [Recovering/Resolving]

NARRATIVE: CASE EVENT DATE: 201709
